FAERS Safety Report 5040197-6 (Version None)
Quarter: 2006Q2

REPORT INFORMATION
  Report Type: 
  Country: None (occurrence: None)
  Receive Date: 20060630
  Receipt Date: 20060620
  Transmission Date: 20061013
  Serious: Yes (Hospitalization)
  Sender: FDA-Public Use
  Company Number: DE-MERCK-0606DEU00090

PATIENT
  Sex: Male

DRUGS (1)
  1. PROPECIA [Suspect]
     Indication: ALOPECIA
     Route: 048
     Dates: start: 20050101

REACTIONS (1)
  - LICHEN PLANUS [None]
